FAERS Safety Report 9901100 (Version 2)
Quarter: 2014Q1

REPORT INFORMATION
  Report Type: Spontaneous
  Country: US (occurrence: US)
  Receive Date: 20140217
  Receipt Date: 20140226
  Transmission Date: 20141002
  Serious: No
  Sender: FDA-Public Use
  Company Number: US-PFIZER INC-2014041475

PATIENT
  Age: 61 Year
  Sex: Female
  Weight: 58.96 kg

DRUGS (2)
  1. VENLAFAXINE HCL [Suspect]
     Indication: DEPRESSION
     Dosage: 225 MG, 1X/DAY
     Route: 048
  2. VENLAFAXINE HCL [Suspect]
     Indication: ANXIETY

REACTIONS (4)
  - Feeling abnormal [Recovering/Resolving]
  - Gait disturbance [Recovering/Resolving]
  - Thinking abnormal [Recovering/Resolving]
  - Malaise [Unknown]
